FAERS Safety Report 5302133-4 (Version None)
Quarter: 2007Q2

REPORT INFORMATION
  Report Type: 
  Country: None (occurrence: None)
  Receive Date: 20070412
  Receipt Date: 20070328
  Transmission Date: 20071010
  Serious: Yes (Death)
  Sender: FDA-Public Use
  Company Number: 056-C5013-07040269

PATIENT
  Age: 80 Year
  Sex: Male

DRUGS (9)
  1. CC-5013 (LENALIDOMIDE) (CAPSULES) [Suspect]
     Indication: MULTIPLE MYELOMA
     Dosage: DAILY, ORAL
     Route: 048
     Dates: start: 20060912, end: 20061016
  2. DEXAMETHASONE TAB [Suspect]
     Indication: MULTIPLE MYELOMA
  3. NEURONTIN [Concomitant]
  4. AVOCARDYL (BETA BLOCKING AGENTS) [Concomitant]
  5. DUPHALAC [Concomitant]
  6. NEORECORMIN (EPOETIN BETA) [Concomitant]
  7. TRAMADOL HCL [Concomitant]
  8. DAFALGAN (PARACETAMOL) [Concomitant]
  9. ZOMETA [Concomitant]

REACTIONS (6)
  - BLOOD GLUCOSE INCREASED [None]
  - BUNDLE BRANCH BLOCK LEFT [None]
  - BUNDLE BRANCH BLOCK RIGHT [None]
  - LIVER FUNCTION TEST ABNORMAL [None]
  - PULMONARY EMBOLISM [None]
  - SUPRAVENTRICULAR EXTRASYSTOLES [None]
